FAERS Safety Report 6750372-8 (Version None)
Quarter: 2010Q2

REPORT INFORMATION
  Report Type: 
  Country: None (occurrence: None)
  Receive Date: 20100601
  Receipt Date: 20100526
  Transmission Date: 20101027
  Serious: Yes (Death, Hospitalization)
  Sender: FDA-Public Use
  Company Number: CA-GILEAD-2010-0028374

PATIENT
  Sex: Male

DRUGS (13)
  1. CAYSTON [Suspect]
     Indication: BRONCHIECTASIS
  2. ALENDRONATE [Concomitant]
  3. CRESTOR [Concomitant]
  4. PULMOZYME [Concomitant]
  5. ASPIRIN [Concomitant]
  6. PLAVIX [Concomitant]
  7. VERAPAMIL [Concomitant]
  8. XALATAN [Concomitant]
     Route: 047
  9. COVERSYL [Concomitant]
  10. TIAZAC [Concomitant]
  11. VENTOLIN [Concomitant]
  12. FORTAZ [Concomitant]
     Route: 042
  13. TOBRAMYCIN [Concomitant]
     Route: 042

REACTIONS (2)
  - BRONCHIECTASIS [None]
  - RESPIRATORY FAILURE [None]
